FAERS Safety Report 19749338 (Version 18)
Quarter: 2023Q2

REPORT INFORMATION
  Report Type: Other
  Country: GB (occurrence: GB)
  Receive Date: 20210826
  Receipt Date: 20230420
  Transmission Date: 20230722
  Serious: Yes (Death, Hospitalization, Other)
  Sender: FDA-Public Use
  Company Number: GB-MACLEODS PHARMA UK LTD-MAC2021032420

PATIENT

DRUGS (76)
  1. AMLODIPINE [Suspect]
     Active Substance: AMLODIPINE BESYLATE
     Indication: Hypertension
     Dosage: UNK, QD
     Route: 065
  2. AMLODIPINE [Suspect]
     Active Substance: AMLODIPINE BESYLATE
     Dosage: UNK, QD
     Route: 065
  3. AMLODIPINE [Suspect]
     Active Substance: AMLODIPINE BESYLATE
     Dosage: UNK, QD
     Route: 065
  4. AMLODIPINE [Suspect]
     Active Substance: AMLODIPINE BESYLATE
     Dosage: UNK, QD
     Route: 065
  5. AMLODIPINE [Suspect]
     Active Substance: AMLODIPINE BESYLATE
     Dosage: UNK, QD
     Route: 065
  6. CLOPIDOGREL [Suspect]
     Active Substance: CLOPIDOGREL BISULFATE
     Indication: Hypertension
     Dosage: 1 DOSAGE FORM, QD
     Route: 065
  7. CLOPIDOGREL [Suspect]
     Active Substance: CLOPIDOGREL BISULFATE
     Indication: Product used for unknown indication
     Dosage: UNK, QD
     Route: 065
  8. CLOPIDOGREL [Suspect]
     Active Substance: CLOPIDOGREL BISULFATE
     Dosage: UNK (CLOPIDOGREL BISULFATE)
     Route: 065
  9. VENLAFAXINE [Suspect]
     Active Substance: VENLAFAXINE HYDROCHLORIDE
     Indication: Depression
     Dosage: UNK UNK, BID; TWO TIMES A DAY
     Route: 065
     Dates: start: 20200820
  10. VENLAFAXINE [Suspect]
     Active Substance: VENLAFAXINE HYDROCHLORIDE
     Dosage: UNK, QD
     Route: 065
  11. VENLAFAXINE [Suspect]
     Active Substance: VENLAFAXINE HYDROCHLORIDE
     Dosage: UNK, QD
     Route: 065
  12. VENLAFAXINE [Suspect]
     Active Substance: VENLAFAXINE HYDROCHLORIDE
     Dosage: UNK, QD
     Route: 065
  13. VENLAFAXINE [Suspect]
     Active Substance: VENLAFAXINE HYDROCHLORIDE
     Dosage: UNK, QD
     Route: 065
  14. CIPROFLOXACIN [Suspect]
     Active Substance: CIPROFLOXACIN
     Indication: Prophylaxis
     Dosage: 2 DOSAGE FORM, QD
     Route: 065
     Dates: start: 20200827
  15. CIPROFLOXACIN [Suspect]
     Active Substance: CIPROFLOXACIN
     Dosage: UNK, BID
     Route: 065
     Dates: start: 20200827
  16. LANSOPRAZOLE [Suspect]
     Active Substance: LANSOPRAZOLE
     Indication: Prophylaxis
     Dosage: UNK, QD
     Route: 065
     Dates: start: 20170101
  17. LINEZOLID [Suspect]
     Active Substance: LINEZOLID
     Indication: Neutropenic sepsis
     Dosage: 1 DOSAGE FORM, QD
     Route: 065
     Dates: start: 20200830
  18. LINEZOLID [Suspect]
     Active Substance: LINEZOLID
     Dosage: UNK
     Route: 065
     Dates: start: 20200830
  19. FLUCONAZOLE [Suspect]
     Active Substance: FLUCONAZOLE
     Indication: Candida infection
     Dosage: 1 DOSAGE FORM, QD
     Route: 065
  20. FLUCONAZOLE [Suspect]
     Active Substance: FLUCONAZOLE
     Dosage: UNK
     Route: 065
  21. ALBUTEROL [Suspect]
     Active Substance: ALBUTEROL
     Indication: Prophylaxis
     Dosage: UNK, QD (ONCE A DAY)
     Route: 065
  22. TIOTROPIUM [Suspect]
     Active Substance: TIOTROPIUM
     Indication: Chronic obstructive pulmonary disease
     Dosage: UNK, QD
     Route: 065
  23. TIOTROPIUM [Suspect]
     Active Substance: TIOTROPIUM
     Dosage: UNK, QD
     Route: 065
  24. TIOTROPIUM [Suspect]
     Active Substance: TIOTROPIUM
     Dosage: UNK, QD
     Route: 065
  25. AMOXICILLIN [Suspect]
     Active Substance: AMOXICILLIN
     Indication: Mouth ulceration
     Dosage: UNK, QD
     Route: 065
     Dates: start: 20200810, end: 20200816
  26. AMOXICILLIN [Suspect]
     Active Substance: AMOXICILLIN
     Indication: Product used for unknown indication
     Dosage: UNK; Q6H
     Route: 065
     Dates: start: 20200810, end: 20200816
  27. AMOXICILLIN [Suspect]
     Active Substance: AMOXICILLIN
     Dosage: UNK
     Route: 065
  28. AMOXICILLIN [Suspect]
     Active Substance: AMOXICILLIN
     Dosage: UNK, Q.W.
     Route: 065
     Dates: start: 20200810, end: 20200816
  29. ATEZOLIZUMAB [Suspect]
     Active Substance: ATEZOLIZUMAB
     Indication: Non-small cell lung cancer
     Dosage: 1200 MILLIGRAM, EVERY 3 WEEKS, MOST RECENT DOSE OF ATEZOLIZUMAB PRIOR TO ADVERSE EVENT (NAUSEA) ONSE
     Route: 042
     Dates: start: 20200729
  30. ATEZOLIZUMAB [Suspect]
     Active Substance: ATEZOLIZUMAB
     Indication: Transitional cell carcinoma
     Dosage: 1200 MILLIGRAM, T.I.W. MOST RECENT DOSE OF ATEZOLIZUMAB PRIOR TO ADVERSE EVENT ONSET ON 19/AUG/2020
     Route: 042
     Dates: start: 20200819
  31. ATEZOLIZUMAB [Suspect]
     Active Substance: ATEZOLIZUMAB
     Indication: Small cell lung cancer
     Dosage: UNK
     Route: 042
  32. ATEZOLIZUMAB [Suspect]
     Active Substance: ATEZOLIZUMAB
     Dosage: 1200 MILLIGRAM, EVERY 3 WEEKS,
     Route: 041
  33. CARBOPLATIN [Suspect]
     Active Substance: CARBOPLATIN
     Indication: Non-small cell lung cancer
     Dosage: 450 MILLIGRAM, QD
     Route: 065
     Dates: start: 20200729
  34. CARBOPLATIN [Suspect]
     Active Substance: CARBOPLATIN
     Dosage: UNK
     Route: 065
  35. CYCLIZINE [Suspect]
     Active Substance: CYCLIZINE
     Indication: Vomiting
     Dosage: UNK, QID
     Route: 065
  36. CYCLIZINE [Suspect]
     Active Substance: CYCLIZINE
     Indication: Neutropenic sepsis
     Dosage: 4 MILLIGRAM, QD, (1 IN 0.25 DAY)
     Route: 065
  37. CYCLIZINE [Suspect]
     Active Substance: CYCLIZINE
     Dosage: UNK, BID
     Route: 065
  38. CYCLIZINE [Suspect]
     Active Substance: CYCLIZINE
     Dosage: 1 DOSAGE FORM, QD
     Route: 065
  39. CYCLIZINE [Suspect]
     Active Substance: CYCLIZINE
     Dosage: UNK
     Route: 065
  40. CYCLIZINE [Suspect]
     Active Substance: CYCLIZINE
     Dosage: UNK, 0.30 PER DAY
     Route: 065
  41. DEXAMETHASONE [Suspect]
     Active Substance: DEXAMETHASONE
     Indication: Dysphagia
     Dosage: 1 MILLIGRAM, QD
     Route: 065
     Dates: start: 20200826
  42. DEXAMETHASONE [Suspect]
     Active Substance: DEXAMETHASONE
     Indication: Prophylaxis
     Dosage: UNK, QD
     Route: 065
  43. DEXAMETHASONE [Suspect]
     Active Substance: DEXAMETHASONE
     Dosage: UNK, BID (1 IN 12 HOUR)
     Route: 065
  44. BENZYDAMINE [Suspect]
     Active Substance: BENZYDAMINE
     Indication: Prophylaxis
     Dosage: UNK
     Route: 065
     Dates: start: 20200819
  45. ETOPOSIDE [Suspect]
     Active Substance: ETOPOSIDE
     Indication: Non-small cell lung cancer
     Dosage: 148 MILLIGRAM, QD
     Route: 042
     Dates: start: 20200729
  46. ETOPOSIDE [Suspect]
     Active Substance: ETOPOSIDE
     Dosage: 600 MILLIGRAM, QD
     Route: 048
     Dates: start: 20200730
  47. ETOPOSIDE [Suspect]
     Active Substance: ETOPOSIDE
     Dosage: UNK
     Route: 016
  48. FORMOTEROL [Suspect]
     Active Substance: FORMOTEROL
     Indication: Hypertension
     Dosage: UNK, 0.5 DAILY 0.5 DAY
     Route: 065
     Dates: start: 20200301
  49. FORMOTEROL [Suspect]
     Active Substance: FORMOTEROL
     Dosage: UNK UNK, BID
     Route: 065
     Dates: start: 20200301
  50. FORMOTEROL [Suspect]
     Active Substance: FORMOTEROL
     Dosage: 1 MILLIGRAM
     Route: 065
     Dates: start: 20200301
  51. LACTULOSE [Suspect]
     Active Substance: LACTULOSE
     Indication: Prophylaxis
     Dosage: UNK, BID; TWO TIMES A DAY
     Route: 065
  52. LACTULOSE [Suspect]
     Active Substance: LACTULOSE
     Dosage: UNK, QD (1 IN 1 DAY)
     Route: 065
  53. LACTULOSE [Suspect]
     Active Substance: LACTULOSE
     Dosage: UNK UNK, BID ( (0.5 PER DAY)
     Route: 065
  54. LACTULOSE [Suspect]
     Active Substance: LACTULOSE
     Dosage: UNK, BID (Q12H)
     Route: 065
  55. LACTULOSE [Suspect]
     Active Substance: LACTULOSE
     Dosage: UNK, QD (2 IN 1 DAY)
     Route: 065
  56. LACTULOSE [Suspect]
     Active Substance: LACTULOSE
     Dosage: UNK UNK, BID ( (0.5 PER DAY)
     Route: 065
  57. MORPHINE SULFATE [Suspect]
     Active Substance: MORPHINE SULFATE
     Indication: Prophylaxis
     Dosage: UNK, QD (0.5)
     Route: 065
     Dates: start: 20200731
  58. MORPHINE SULFATE [Suspect]
     Active Substance: MORPHINE SULFATE
     Indication: Pain
     Dosage: UNK
     Route: 065
     Dates: start: 20200825
  59. MORPHINE SULFATE [Suspect]
     Active Substance: MORPHINE SULFATE
     Dosage: UNK, QD
     Route: 065
     Dates: start: 20200727
  60. MORPHINE SULFATE [Suspect]
     Active Substance: MORPHINE SULFATE
     Indication: Pain
     Dosage: UNK, QD
     Route: 065
     Dates: start: 20200727
  61. MORPHINE SULFATE [Suspect]
     Active Substance: MORPHINE SULFATE
     Indication: Prophylaxis
     Dosage: UNK
     Route: 065
     Dates: start: 20200825
  62. MORPHINE SULFATE [Suspect]
     Active Substance: MORPHINE SULFATE
     Indication: Product used for unknown indication
     Dosage: UNK, QD
     Route: 065
     Dates: start: 20200731
  63. ACETAMINOPHEN\CODEINE PHOSPHATE [Suspect]
     Active Substance: ACETAMINOPHEN\CODEINE PHOSPHATE
     Indication: Headache
     Dosage: 0.5 MILLIGRAM, QD
     Route: 065
  64. ACETAMINOPHEN\CODEINE PHOSPHATE [Suspect]
     Active Substance: ACETAMINOPHEN\CODEINE PHOSPHATE
     Indication: Pain
     Dosage: UNK, BID
     Route: 065
  65. VORICONAZOLE [Suspect]
     Active Substance: VORICONAZOLE
     Indication: Neutropenic sepsis
     Dosage: UNK, QD
     Route: 065
     Dates: start: 20200830
  66. ZOPICLONE [Suspect]
     Active Substance: ZOPICLONE
     Indication: Prophylaxis
     Dosage: UNK, QD
     Route: 065
     Dates: start: 20200731
  67. ZOPICLONE [Suspect]
     Active Substance: ZOPICLONE
     Indication: Nervous system disorder
     Dosage: UNK, QD
     Route: 065
     Dates: start: 20200902
  68. SPIRIVA [Suspect]
     Active Substance: TIOTROPIUM BROMIDE MONOHYDRATE
     Indication: Chronic obstructive pulmonary disease
     Dosage: UNK UNK, QD; ONCE A DAY
     Route: 065
  69. MAGNESIUM [Concomitant]
     Active Substance: MAGNESIUM
     Indication: Product used for unknown indication
     Dosage: UNK, QD
     Route: 065
     Dates: start: 20200819, end: 20200819
  70. METOCLOPRAMIDE [Concomitant]
     Active Substance: METOCLOPRAMIDE
     Indication: Vomiting
     Dosage: UNK UNK, QID
     Route: 065
  71. METOCLOPRAMIDE [Concomitant]
     Active Substance: METOCLOPRAMIDE
     Dosage: UNK, QD
     Route: 065
  72. PHOSPHORIC ACID [Concomitant]
     Active Substance: PHOSPHORIC ACID
     Indication: Constipation
     Dosage: UNK, QID
     Route: 065
     Dates: start: 20200825, end: 20200825
  73. Sando-K [Concomitant]
     Indication: Prophylaxis
     Dosage: UNK (5 QD)
     Route: 065
     Dates: start: 20200828, end: 20200901
  74. Sando-K [Concomitant]
     Dosage: UNK, 0.5 DAILY
     Route: 065
     Dates: start: 20200819
  75. Sando-K [Concomitant]
     Dosage: UNK UNK, BID; TWO TIMES A DAY
     Route: 065
     Dates: start: 20200819
  76. ONDANSETRON [Concomitant]
     Active Substance: ONDANSETRON
     Indication: Prophylaxis
     Dosage: 8 MILLIGRAM
     Route: 065
     Dates: start: 20200729

REACTIONS (31)
  - Death [Fatal]
  - Asthenia [Fatal]
  - Neutropenic sepsis [Fatal]
  - Dysphagia [Fatal]
  - Constipation [Fatal]
  - Skin candida [Fatal]
  - Productive cough [Fatal]
  - Vomiting [Fatal]
  - Dehydration [Fatal]
  - Dyspnoea [Fatal]
  - Mucosal inflammation [Fatal]
  - Headache [Fatal]
  - Vomiting [Fatal]
  - Gait disturbance [Fatal]
  - Nervous system disorder [Fatal]
  - Candida infection [Fatal]
  - Asthenia [Fatal]
  - Product use in unapproved indication [Fatal]
  - Balance disorder [Fatal]
  - Decreased appetite [Recovered/Resolved]
  - Neutrophil count decreased [Recovered/Resolved]
  - Hypomagnesaemia [Recovered/Resolved]
  - Balance disorder [Unknown]
  - Hypokalaemia [Recovered/Resolved]
  - Nausea [Recovered/Resolved]
  - Diarrhoea [Recovered/Resolved]
  - Depression [Not Recovered/Not Resolved]
  - Mouth ulceration [Recovered/Resolved]
  - Hypomagnesaemia [Recovered/Resolved]
  - Anaemia [Unknown]
  - Anaemia [Recovered/Resolved]

NARRATIVE: CASE EVENT DATE: 20200730
